FAERS Safety Report 5201715-8 (Version None)
Quarter: 2007Q1

REPORT INFORMATION
  Report Type: 
  Country: None (occurrence: None)
  Receive Date: 20070104
  Receipt Date: 20061222
  Transmission Date: 20070707
  Serious: Yes (Disabling, Other)
  Sender: FDA-Public Use
  Company Number: 2006JP005228

PATIENT
  Age: 39 Year
  Sex: Male

DRUGS (14)
  1. TACROLIMUS CAPSULES(TACROLIMUS CAPSULES) [Suspect]
     Indication: RENAL AND PANCREAS TRANSPLANT
     Dosage: 0.05 MG/KG, BID, ORAL
     Route: 048
     Dates: start: 20060525, end: 20060526
  2. PROGRAF [Suspect]
     Indication: RENAL AND PANCREAS TRANSPLANT
     Dosage: 0.024 MG/KG, CONTINUOUS, IV DRIP
     Route: 041
     Dates: start: 20060526, end: 20060528
  3. PROGRAF [Suspect]
     Indication: RENAL AND PANCREAS TRANSPLANT
  4. METHYLPREDNISOLONE 16MG TAB [Concomitant]
  5. PREDNISOLONE [Concomitant]
  6. CELLCEPT [Concomitant]
  7. SIMULECT [Concomitant]
  8. HUMULIN R [Concomitant]
  9. PROSTAGLANDIN E1 (ALPROSTADIL) [Concomitant]
  10. HEPARIN [Concomitant]
  11. FOY (GABEXATE MESILATE) [Concomitant]
  12. CEFAZOLIN [Concomitant]
  13. FUNGUARD (MICAFUNGIN) [Concomitant]
  14. OMEPRAL [Concomitant]

REACTIONS (3)
  - ARTERIAL THROMBOSIS [None]
  - COMPLICATIONS OF TRANSPLANTED PANCREAS [None]
  - HYPERAMYLASAEMIA [None]
